FAERS Safety Report 7241438-7 (Version None)
Quarter: 2011Q1

REPORT INFORMATION
  Report Type: 
  Country: None (occurrence: None)
  Receive Date: 20110124
  Receipt Date: 20110119
  Transmission Date: 20110831
  Serious: Yes (Hospitalization)
  Sender: FDA-Public Use
  Company Number: GXKR2011DE00630

PATIENT
  Age: 71 Year
  Sex: Male
  Weight: 90 kg

DRUGS (21)
  1. OXYGESIC [Concomitant]
     Route: 048
  2. CEFUROXIME [Suspect]
     Route: 042
  3. BISOPROLOL [Concomitant]
     Route: 048
  4. CLOPIDOGREL [Concomitant]
     Route: 048
  5. BIFITERAL ^PHILIPS^ [Concomitant]
     Route: 048
  6. ACETYLSALICYLIC ACID [Suspect]
     Indication: ISCHAEMIC HEART DISEASE PROPHYLAXIS
     Dosage: 100 MG, QD
     Route: 048
     Dates: start: 20081001
  7. CLEXANE [Suspect]
     Indication: THROMBOSIS PROPHYLAXIS
     Dosage: UNK
     Route: 058
     Dates: start: 20091128, end: 20091208
  8. VOLTAREN [Concomitant]
     Route: 048
  9. BERLOSIN [Concomitant]
     Route: 048
  10. EMBOLEX [Concomitant]
     Route: 058
  11. ALLOPURINOL [Concomitant]
     Route: 048
  12. EXFORGE [Concomitant]
     Route: 048
  13. CEFUROXIME [Concomitant]
     Route: 048
  14. OMEPRAZOLE [Concomitant]
     Route: 048
  15. BICALUTAMIDE [Concomitant]
     Route: 048
  16. SIMVASTATIN [Concomitant]
     Route: 048
  17. TORASEMIDE [Concomitant]
     Route: 048
  18. CEFUROXIME [Concomitant]
     Route: 042
  19. PARACETAMOL [Concomitant]
     Route: 048
  20. DIOVAN [Concomitant]
     Route: 048
  21. NOVAMINSULFON ^BRAUN^ [Concomitant]
     Route: 048

REACTIONS (5)
  - HAEMATOMA EVACUATION [None]
  - IMPAIRED HEALING [None]
  - ERYTHEMA [None]
  - SECRETION DISCHARGE [None]
  - PAIN [None]
